FAERS Safety Report 8536012-6 (Version None)
Quarter: 2012Q3

REPORT INFORMATION
  Report Type: 
  Country: None (occurrence: None)
  Receive Date: 20120725
  Receipt Date: 20120724
  Transmission Date: 20120928
  Serious: Yes (Life-Threatening, Hospitalization, Other)
  Sender: FDA-Public Use
  Company Number: PHHY2012CN056341

PATIENT
  Age: 69 Year
  Sex: Female

DRUGS (9)
  1. METOCLOPRAMIDE [Concomitant]
     Dosage: UNK UKN, UNK
  2. CALTRATE +D [Concomitant]
     Dosage: UNK UKN, UNK
     Route: 048
  3. LIPOSOLUBLE VIT D [Concomitant]
     Dosage: 10 ML
     Route: 042
  4. SHENMAI [Concomitant]
     Dosage: 40 ML
  5. SIWEIPU [Concomitant]
     Dosage: UNK UKN, UNK
  6. ALPHA D3 [Concomitant]
     Dosage: UNK UKN, UNK
     Route: 048
  7. BONE PEPTIDE [Concomitant]
     Dosage: 2 AMPULES
     Route: 042
  8. INDOMETHACIN [Concomitant]
     Dosage: UNK UKN, UNK
     Route: 054
  9. MIACALCIN [Suspect]
     Indication: OSTEOPOROSIS
     Dosage: 50 IU, QD
     Route: 058
     Dates: end: 20120704

REACTIONS (24)
  - STAPHYLOCOCCAL BACTERAEMIA [None]
  - RASH [None]
  - HYPOTHYROIDISM [None]
  - LIMB DISCOMFORT [None]
  - HAEMOGLOBIN DECREASED [None]
  - BLOOD POTASSIUM DECREASED [None]
  - PLATELET COUNT DECREASED [None]
  - RESPIRATORY FAILURE [None]
  - OEDEMA [None]
  - BLOOD PRESSURE INCREASED [None]
  - LUNG INFECTION [None]
  - PYREXIA [None]
  - PULMONARY OEDEMA [None]
  - NAUSEA [None]
  - VOMITING [None]
  - HYPOALBUMINAEMIA [None]
  - ALVEOLITIS ALLERGIC [None]
  - BREATH SOUNDS ABNORMAL [None]
  - CHEST DISCOMFORT [None]
  - ALTERED STATE OF CONSCIOUSNESS [None]
  - PLEURAL EFFUSION [None]
  - WHITE BLOOD CELL COUNT INCREASED [None]
  - BLOOD GLUCOSE INCREASED [None]
  - DIZZINESS [None]
